FAERS Safety Report 6370613-9 (Version None)
Quarter: 2009Q3

REPORT INFORMATION
  Report Type: 
  Country: None (occurrence: None)
  Receive Date: 20090923
  Receipt Date: 20090915
  Transmission Date: 20100115
  Serious: Yes (Hospitalization)
  Sender: FDA-Public Use
  Company Number: KR-ELI_LILLY_AND_COMPANY-KR200908003000

PATIENT
  Age: 54 Year
  Sex: Male

DRUGS (5)
  1. HUMALOG MIX 75/25 [Suspect]
     Indication: TYPE 2 DIABETES MELLITUS
     Dosage: 25 IU, EACH MORNING
     Route: 058
  2. HUMALOG MIX 75/25 [Suspect]
     Dosage: 22 IU, EACH EVENING
     Route: 058
  3. METFORMIN HCL [Concomitant]
     Dosage: 500 MG, 3/D
  4. LOSARTAN [Concomitant]
     Dosage: UNK, DAILY (1/D)
  5. ANTIHYPERTENSIVES [Concomitant]

REACTIONS (2)
  - FALL [None]
  - PELVIC FRACTURE [None]
